FAERS Safety Report 15821766 (Version 2)
Quarter: 2019Q1

REPORT INFORMATION
  Report Type: Spontaneous
  Country: US (occurrence: US)
  Receive Date: 20190114
  Receipt Date: 20190301
  Transmission Date: 20190417
  Serious: No
  Sender: FDA-Public Use
  Company Number: US-JNJFOC-20181233384

PATIENT
  Age: 27 Year
  Sex: Female
  Weight: 74.84 kg

DRUGS (1)
  1. RISPERDAL CONSTA [Suspect]
     Active Substance: RISPERIDONE
     Indication: BIPOLAR DISORDER
     Route: 030
     Dates: start: 201809

REACTIONS (2)
  - Device malfunction [Unknown]
  - Product dose omission [Unknown]

NARRATIVE: CASE EVENT DATE: 20181226
